FAERS Safety Report 10162291 (Version 1)
Quarter: 2014Q2

REPORT INFORMATION
  Report Type: Spontaneous
  Country: GB (occurrence: None)
  Receive Date: 20140507
  Receipt Date: 20140507
  Transmission Date: 20141212
  Serious: Yes (Death)
  Sender: FDA-Public Use
  Company Number: 2318637

PATIENT
  Age: 60 Year
  Sex: Female

DRUGS (2)
  1. OXALIPLATIN [Suspect]
     Indication: COLON CANCER STAGE III
     Dosage: UNKNOWN, INTRAVENOUS (NOT OTHERWISE SPECIFIED)?
     Route: 042
     Dates: start: 20130923, end: 20131202
  2. (5 FLUOROUACIL /00098801/) [Concomitant]

REACTIONS (2)
  - Bulbar palsy [None]
  - Guillain-Barre syndrome [None]
